FAERS Safety Report 7073601-2 (Version None)
Quarter: 2010Q4

REPORT INFORMATION
  Report Type: 
  Country: None (occurrence: None)
  Receive Date: 20101029
  Receipt Date: 20101020
  Transmission Date: 20110411
  Serious: Yes (Hospitalization)
  Sender: FDA-Public Use
  Company Number: ES-CELGENEUS-144-C5013-10100096

PATIENT
  Sex: Male
  Weight: 100.4 kg

DRUGS (8)
  1. THALIDOMIDE [Suspect]
     Indication: MULTIPLE MYELOMA
     Route: 048
     Dates: start: 20100301
  2. THALIDOMIDE [Suspect]
     Route: 048
     Dates: start: 20100906
  3. MELPHALAN HYDROCHLORIDE [Suspect]
     Indication: MULTIPLE MYELOMA
     Route: 065
     Dates: start: 20100301
  4. MELPHALAN HYDROCHLORIDE [Suspect]
     Route: 065
     Dates: start: 20100906, end: 20100909
  5. PREDNISONE [Suspect]
     Indication: MULTIPLE MYELOMA
     Route: 065
     Dates: start: 20100301
  6. PREDNISONE [Suspect]
     Route: 065
     Dates: start: 20100906, end: 20100909
  7. OMEPRAZOLE [Concomitant]
     Indication: PROPHYLAXIS
     Route: 048
     Dates: start: 20100130
  8. ALLOPURINOL [Concomitant]
     Indication: HYPERURICAEMIA
     Route: 048
     Dates: start: 20100510

REACTIONS (2)
  - RESPIRATORY FAILURE [None]
  - RESPIRATORY TRACT INFECTION [None]
